FAERS Safety Report 9576848 (Version 1)
Quarter: 2013Q4

REPORT INFORMATION
  Report Type: Spontaneous
  Country: US (occurrence: US)
  Receive Date: 20131001
  Receipt Date: 20131001
  Transmission Date: 20140711
  Serious: No
  Sender: FDA-Public Use
  Company Number: US-AMGEN-USASP2013005162

PATIENT
  Sex: Female
  Weight: 72.56 kg

DRUGS (31)
  1. ENBREL [Suspect]
     Indication: RHEUMATOID ARTHRITIS
     Dosage: 50 MG, QWK
     Route: 058
  2. CYMBALTA [Concomitant]
     Dosage: 20 MG, UNK
  3. HUMALOG [Concomitant]
     Dosage: 100/ML, UNK
  4. SINGULAIR [Concomitant]
     Dosage: 10 MG, UNK
  5. PHENERGAN                          /00033001/ [Concomitant]
     Dosage: 25 MG, UNK
  6. XANAX [Concomitant]
     Dosage: 0.25 MG, UNK
  7. COLESTID [Concomitant]
     Dosage: 1 G, UNK
  8. CREON [Concomitant]
     Dosage: UNK
  9. ASTELIN                            /00085801/ [Concomitant]
     Dosage: 137 MUG, UNK
  10. LASIX                              /00032601/ [Concomitant]
     Dosage: 20 MG, UNK
  11. MARINOL                            /00003301/ [Concomitant]
     Dosage: 10 MG, UNK
  12. COUMADIN                           /00014802/ [Concomitant]
     Dosage: 10 MG, UNK
  13. PATADAY [Concomitant]
     Dosage: 0.2 %, UNK
  14. LOPID [Concomitant]
     Dosage: 600 MG, UNK
  15. ALLEGRA [Concomitant]
     Dosage: 30 MG, UNK
  16. CARAFATE [Concomitant]
     Dosage: 1 G, UNK
  17. CARDIZEM CD [Concomitant]
     Dosage: 120 MG/24
  18. WELLBUTRIN [Concomitant]
     Dosage: 100 MG, UNK
  19. FLONASE [Concomitant]
     Dosage: 0.05 %, UNK
  20. ADVAIR [Concomitant]
     Dosage: 100/50
  21. NEXIUM                             /01479302/ [Concomitant]
     Dosage: 20 MG, UNK
  22. ZESTRIL [Concomitant]
     Dosage: 10 MG, UNK
  23. SPIRIVA [Concomitant]
     Dosage: UNK
  24. METHOTREXATE [Concomitant]
     Dosage: 50MG/2ML, UNK
  25. IRON [Concomitant]
     Dosage: 18 MG, UNK
  26. VITAMIN D                          /00107901/ [Concomitant]
     Dosage: 400 UNIT, UNK
  27. NORCO [Concomitant]
     Dosage: 10-325 MG
  28. OXYCONTIN [Concomitant]
     Dosage: 30 MG, UNK
  29. VESICARE [Concomitant]
     Dosage: 10 MG, UNK
  30. CYTOMEL [Concomitant]
     Dosage: 25 MUG, UNK
  31. XOPENEX [Concomitant]
     Dosage: 1.25/0.5

REACTIONS (1)
  - Drug ineffective [Unknown]
